FAERS Safety Report 20217380 (Version 1)
Quarter: 2021Q4

REPORT INFORMATION
  Report Type: Spontaneous
  Country: CN (occurrence: CN)
  Receive Date: 20211222
  Receipt Date: 20211222
  Transmission Date: 20220303
  Serious: Yes (Other)
  Sender: FDA-Public Use
  Company Number: CN-PFIZER INC-202101770919

PATIENT
  Age: 49 Year
  Sex: Female
  Weight: 126 kg

DRUGS (2)
  1. ZYVOX [Suspect]
     Active Substance: LINEZOLID
     Indication: Septic shock
     Dosage: 0.600 G, 2X/DAY
     Route: 048
     Dates: start: 20211125, end: 20211203
  2. ZYVOX [Suspect]
     Active Substance: LINEZOLID
     Indication: Device related sepsis

REACTIONS (2)
  - Myelosuppression [Recovering/Resolving]
  - Cardiac failure [Unknown]

NARRATIVE: CASE EVENT DATE: 20211201
